FAERS Safety Report 6163013-8 (Version None)
Quarter: 2009Q2

REPORT INFORMATION
  Report Type: 
  Country: None (occurrence: None)
  Receive Date: 20090420
  Receipt Date: 20090408
  Transmission Date: 20091009
  Serious: Yes (Death, Hospitalization)
  Sender: FDA-Public Use
  Company Number: 2009AL002042

PATIENT
  Sex: Female

DRUGS (1)
  1. DIGOXIN [Suspect]
     Indication: HYPERTENSION
     Dosage: PO; PRIOR TO 30AUG2004
     Route: 048
     Dates: start: 20040801

REACTIONS (4)
  - ECONOMIC PROBLEM [None]
  - EMOTIONAL DISTRESS [None]
  - PAIN [None]
  - THERAPEUTIC AGENT TOXICITY [None]
